FAERS Safety Report 13589293 (Version 1)
Quarter: 2017Q2

REPORT INFORMATION
  Report Type: Spontaneous
  Country: US (occurrence: US)
  Receive Date: 20170526
  Receipt Date: 20170526
  Transmission Date: 20170830
  Serious: No
  Sender: FDA-Public Use
  Company Number: None

PATIENT
  Sex: Female

DRUGS (1)
  1. ALIMTA [Suspect]
     Active Substance: PEMETREXED DISODIUM
     Dosage: 5MG EVERY 21 DAYS IV
     Route: 042
     Dates: start: 20170515

REACTIONS (3)
  - Anaemia [None]
  - Asthenia [None]
  - Chest pain [None]
